FAERS Safety Report 8876258 (Version 1)
Quarter: 2012Q4

REPORT INFORMATION
  Report Type: 
  Country: IT (occurrence: IT)
  Receive Date: 20121023
  Receipt Date: 20121023
  Transmission Date: 20130627
  Serious: Yes (Hospitalization, Other)
  Sender: FDA-Public Use
  Company Number: IT-BRISTOL-MYERS SQUIBB COMPANY-17040585

PATIENT
  Age: 87 Year
  Sex: Female
  Weight: 80 kg

DRUGS (2)
  1. COUMADIN TABS 5 MG [Suspect]
     Indication: ATRIAL FIBRILLATION
     Dosage: 7,5 mg/wk
     Route: 048
     Dates: start: 20101001, end: 20121004
  2. CIPROFLOXACIN [Suspect]
     Indication: BRONCHITIS
     Dosage: Ciprofloxacin hydrochloride monohydrate
     Dates: start: 20120928, end: 20121002

REACTIONS (5)
  - International normalised ratio increased [Recovering/Resolving]
  - Cardiac failure [Recovering/Resolving]
  - Microcytic anaemia [Recovering/Resolving]
  - Overdose [Recovering/Resolving]
  - Bronchitis [Recovering/Resolving]
